FAERS Safety Report 4470417-8 (Version None)
Quarter: 2004Q3

REPORT INFORMATION
  Report Type: 
  Country: None (occurrence: None)
  Receive Date: 20040909
  Receipt Date: 20040518
  Transmission Date: 20050211
  Serious: No
  Sender: FDA-Public Use
  Company Number: US-JNJFOC-20040400302

PATIENT
  Age: 67 Year
  Sex: Female

DRUGS (1)
  1. NATRECOR (NESIRITIDE) INJECTION [Suspect]
     Indication: CARDIAC FAILURE CONGESTIVE
     Dosage: 2 UG/KG 20.8 ML 1 IN 20 MINUTE
     Dates: start: 20040331, end: 20040331

REACTIONS (4)
  - BLOOD PRESSURE DIASTOLIC INCREASED [None]
  - MEDICATION ERROR [None]
  - NO ADVERSE DRUG EFFECT [None]
  - OVERDOSE [None]
